FAERS Safety Report 16334795 (Version 1)
Quarter: 2019Q2

REPORT INFORMATION
  Report Type: Spontaneous
  Country: US (occurrence: US)
  Receive Date: 20190520
  Receipt Date: 20190520
  Transmission Date: 20190711
  Serious: No
  Sender: FDA-Public Use
  Company Number: PHEH2019US020271

PATIENT
  Age: 67 Year
  Sex: Male
  Weight: 101.13 kg

DRUGS (1)
  1. CLOFAZIMINE [Suspect]
     Active Substance: CLOFAZIMINE
     Indication: MYCOBACTERIUM ABSCESSUS INFECTION
     Dosage: 100 MG, QD
     Route: 048
     Dates: start: 20140806

REACTIONS (6)
  - Wheezing [Unknown]
  - Sciatica [Recovering/Resolving]
  - Arthralgia [Recovering/Resolving]
  - Bronchitis [Recovered/Resolved]
  - Cough [Unknown]
  - Sinusitis [Recovered/Resolved]

NARRATIVE: CASE EVENT DATE: 20190315
